FAERS Safety Report 4982595-2 (Version None)
Quarter: 2006Q1

REPORT INFORMATION
  Report Type: 
  Country: None (occurrence: None)
  Receive Date: 20060227
  Receipt Date: 20050606
  Transmission Date: 20060701
  Serious: Yes (Disabling)
  Sender: FDA-Public Use
  Company Number: WAES 0506USA01145

PATIENT
  Age: 36 Year
  Sex: Male
  Weight: 110.6777 kg

DRUGS (10)
  1. ZOCOR [Suspect]
     Indication: BLOOD CHOLESTEROL INCREASED
     Dosage: 20 MG/HS/PO
     Route: 048
     Dates: start: 20050117, end: 20050131
  2. COUMADIN [Concomitant]
  3. DURAGESIC-100 [Concomitant]
  4. LEXAPRO [Concomitant]
  5. LOPRESSOR [Concomitant]
  6. PERCOCET [Concomitant]
  7. PLAVIX [Concomitant]
  8. PRINIVIL [Concomitant]
  9. XANAX [Concomitant]
  10. ASPIRIN [Concomitant]

REACTIONS (2)
  - MUSCLE FATIGUE [None]
  - MUSCULAR WEAKNESS [None]
